FAERS Safety Report 7881786-0 (Version None)
Quarter: 2011Q4

REPORT INFORMATION
  Report Type: 
  Country: None (occurrence: None)
  Receive Date: 20111101
  Receipt Date: 20110531
  Transmission Date: 20120403
  Serious: No
  Sender: FDA-Public Use
  Company Number: US-AMGEN-USASP2011027907

PATIENT
  Age: 66 Year
  Sex: Female

DRUGS (1)
  1. ENBREL [Suspect]
     Indication: RHEUMATOID ARTHRITIS
     Dosage: UNK
     Dates: start: 20061201

REACTIONS (9)
  - STRESS [None]
  - INJURY ASSOCIATED WITH DEVICE [None]
  - MUSCULAR WEAKNESS [None]
  - INCREASED TENDENCY TO BRUISE [None]
  - MUSCULOSKELETAL DISORDER [None]
  - RHEUMATOID ARTHRITIS [None]
  - SKIN ATROPHY [None]
  - NERVE INJURY [None]
  - INJECTION SITE DISCOLOURATION [None]
